APPROVED DRUG PRODUCT: OXYCODONE HYDROCHLORIDE
Active Ingredient: OXYCODONE HYDROCHLORIDE
Strength: 5MG
Dosage Form/Route: TABLET;ORAL
Application: A202160 | Product #001 | TE Code: AB
Applicant: AUROLIFE PHARMA LLC
Approved: Nov 19, 2012 | RLD: No | RS: No | Type: RX